FAERS Safety Report 6148474-2 (Version None)
Quarter: 2009Q2

REPORT INFORMATION
  Report Type: 
  Country: None (occurrence: None)
  Receive Date: 20090408
  Receipt Date: 20090326
  Transmission Date: 20091009
  Serious: Yes (Other)
  Sender: FDA-Public Use
  Company Number: PHBS1999NZ04349

PATIENT
  Sex: Female
  Weight: 57 kg

DRUGS (2)
  1. CLOZARIL [Suspect]
     Indication: SCHIZOPHRENIA
     Dosage: 150 MG, UNK
     Route: 048
     Dates: start: 19990903, end: 19991001
  2. VALPROATE SODIUM [Concomitant]
     Route: 065
     Dates: start: 19990807

REACTIONS (2)
  - EOSINOPHILIA [None]
  - NEUTROPENIA [None]
